FAERS Safety Report 16720189 (Version 1)
Quarter: 2019Q4

REPORT INFORMATION
  Report Type: Spontaneous
  Country: US (occurrence: US)
  Receive Date: 20190819
  Receipt Date: 20190819
  Transmission Date: 20200122
  Serious: Yes (Hospitalization)
  Sender: FDA-Public Use
  Company Number: None

PATIENT
  Age: 54 Year
  Sex: Female
  Weight: 106 kg

DRUGS (1)
  1. LIRAGLUTIDE [Suspect]
     Active Substance: LIRAGLUTIDE
     Route: 058
     Dates: start: 20190709, end: 20190818

REACTIONS (3)
  - Pancreatitis acute [None]
  - Product communication issue [None]
  - Incorrect dose administered by device [None]

NARRATIVE: CASE EVENT DATE: 20190818
